FAERS Safety Report 6189854-9 (Version None)
Quarter: 2009Q2

REPORT INFORMATION
  Report Type: 
  Country: None (occurrence: None)
  Receive Date: 20090514
  Receipt Date: 20081126
  Transmission Date: 20091009
  Serious: Yes (Death, Hospitalization, Other)
  Sender: FDA-Public Use
  Company Number: BE-B.I. PHARMACEUTICALS,INC./RIDGEFIELD-2008-BL-00200BL

PATIENT
  Sex: Male

DRUGS (13)
  1. MIRAPEX [Suspect]
     Indication: PARKINSON'S DISEASE
     Route: 048
     Dates: start: 20080502, end: 20080702
  2. MIRAPEX [Suspect]
     Indication: RESTLESS LEGS SYNDROME
     Dosage: .09MG
     Route: 048
     Dates: start: 20080827, end: 20080827
  3. MIRAPEX [Suspect]
     Dosage: .18MG
     Route: 048
     Dates: start: 20080828, end: 20080911
  4. MIRAPEX [Suspect]
     Dosage: .27MG
     Route: 048
     Dates: start: 20080911, end: 20080914
  5. MIRAPEX [Suspect]
     Dosage: .36MG
     Route: 048
     Dates: start: 20080914, end: 20080924
  6. REQUIP [Suspect]
     Indication: PARKINSON'S DISEASE
     Route: 048
     Dates: start: 20071205, end: 20080502
  7. REQUIP [Suspect]
     Indication: RESTLESS LEGS SYNDROME
     Route: 048
     Dates: start: 20080702, end: 20080813
  8. EMCONCOR MITIS [Concomitant]
  9. CORDARONE [Concomitant]
  10. ACCUPRIL [Concomitant]
  11. LIPANTHYL [Concomitant]
  12. SINTROM [Concomitant]
  13. MAREVAN [Concomitant]

REACTIONS (7)
  - ACCIDENT [None]
  - ATRIAL FIBRILLATION [None]
  - GRAVITATIONAL OEDEMA [None]
  - MULTI-ORGAN FAILURE [None]
  - OEDEMA PERIPHERAL [None]
  - RENAL FAILURE [None]
  - SCROTAL OEDEMA [None]
